FAERS Safety Report 15783252 (Version 1)
Quarter: 2019Q1

REPORT INFORMATION
  Report Type: Spontaneous
  Country: US (occurrence: US)
  Receive Date: 20190102
  Receipt Date: 20190102
  Transmission Date: 20190417
  Serious: No
  Sender: FDA-Public Use
  Company Number: US-AMNEAL PHARMACEUTICALS-2018AMN00582

PATIENT
  Sex: Male

DRUGS (2)
  1. VIGABATRIN. [Suspect]
     Active Substance: VIGABATRIN
     Indication: INFANTILE SPASMS
     Dosage: 1500 MG, 1X/DAYMORNING, 1000 MG 1X/DAY AFTERNOON, 2000 MG 1X/DAY
  2. VIGABATRIN. [Suspect]
     Active Substance: VIGABATRIN
     Dosage: UNK, 3X/DAY (1500MG IN MORNING, 1500MG IN AFTERNOON, 2000MG AT NIGHT)

REACTIONS (4)
  - Product dose omission [Unknown]
  - Cough [Unknown]
  - Vomiting [Unknown]
  - Nasopharyngitis [Unknown]
